FAERS Safety Report 4576760-6 (Version None)
Quarter: 2005Q1

REPORT INFORMATION
  Report Type: 
  Country: None (occurrence: None)
  Receive Date: 20050207
  Receipt Date: 20050124
  Transmission Date: 20050727
  Serious: Yes (Hospitalization)
  Sender: FDA-Public Use
  Company Number: 500170412

PATIENT
  Age: 43 Year
  Sex: Female

DRUGS (1)
  1. PAREMYD [Suspect]
     Dosage: 1 DROP/EYE, ONCE, TOPICAL
     Route: 061
     Dates: start: 20050116

REACTIONS (1)
  - ANAPHYLACTIC REACTION [None]
